FAERS Safety Report 10030293 (Version 2)
Quarter: 2014Q1

REPORT INFORMATION
  Report Type: Spontaneous
  Country: None (occurrence: US)
  Receive Date: 20140323
  Receipt Date: 20140323
  Transmission Date: 20141002
  Serious: No
  Sender: FDA-Public Use
  Company Number: US-ALLERGAN-1307758US

PATIENT
  Age: 55 Year
  Sex: Female

DRUGS (2)
  1. LATISSE 0.03% [Suspect]
     Indication: GROWTH OF EYELASHES
     Dosage: UNK
     Dates: start: 20130524, end: 20130524
  2. MULTIVITAMIN NOS [Concomitant]
     Indication: SUPPLEMENTATION THERAPY

REACTIONS (7)
  - Accidental exposure to product [Unknown]
  - Abnormal sensation in eye [Unknown]
  - Foreign body sensation in eyes [Unknown]
  - Foreign body sensation in eyes [Unknown]
  - Eye irritation [Unknown]
  - Eye pruritus [Unknown]
  - Eye irritation [Unknown]
